FAERS Safety Report 26126990 (Version 1)
Quarter: 2025Q4

REPORT INFORMATION
  Report Type: Spontaneous
  Country: US (occurrence: None)
  Receive Date: 20251205
  Receipt Date: 20251205
  Transmission Date: 20260117
  Serious: Yes (Hospitalization)
  Sender: FDA-CTU
  Company Number: None

PATIENT
  Sex: Female

DRUGS (2)
  1. EMGALITY [Suspect]
     Active Substance: GALCANEZUMAB-GNLM
     Indication: Tension headache
     Dosage: 120 MG MONTHLY SUBCUTANEOUS
     Route: 058
  2. OPSUMIT [Suspect]
     Active Substance: MACITENTAN

REACTIONS (3)
  - Pneumonia [None]
  - Product use issue [None]
  - Product dose omission in error [None]
